FAERS Safety Report 10919940 (Version 1)
Quarter: 2015Q1

REPORT INFORMATION
  Report Type: Spontaneous
  Country: US (occurrence: US)
  Receive Date: 20150317
  Receipt Date: 20150317
  Transmission Date: 20150721
  Serious: Yes (Other)
  Sender: FDA-Public Use
  Company Number: US-JNJFOC-20150219984

PATIENT
  Sex: Female

DRUGS (2)
  1. EXTRA STRENGTH APAP [Suspect]
     Active Substance: ACETAMINOPHEN
     Indication: PRODUCT USED FOR UNKNOWN INDICATION
     Route: 065
     Dates: start: 20080314
  2. EXTRA STRENGTH APAP [Suspect]
     Active Substance: ACETAMINOPHEN
     Route: 065

REACTIONS (2)
  - Overdose [Unknown]
  - Intentional overdose [None]

NARRATIVE: CASE EVENT DATE: 20080314
